FAERS Safety Report 6244293-7 (Version None)
Quarter: 2009Q2

REPORT INFORMATION
  Report Type: 
  Country: None (occurrence: None)
  Receive Date: 20090625
  Receipt Date: 20090616
  Transmission Date: 20091009
  Serious: Yes (Hospitalization)
  Sender: FDA-Public Use
  Company Number: JP-ASTRAZENECA-2009SE02985

PATIENT
  Age: 60 Year
  Sex: Male

DRUGS (3)
  1. BLOPRESS TABLETS 8 [Suspect]
     Indication: HYPERTENSION
     Route: 048
     Dates: start: 20090612, end: 20090614
  2. AMLODIPINE [Suspect]
     Route: 048
     Dates: end: 20090614
  3. GASTER [Suspect]
     Route: 048
     Dates: end: 20090614

REACTIONS (1)
  - ERYTHEMA MULTIFORME [None]
